FAERS Safety Report 5950117-5 (Version None)
Quarter: 2008Q4

REPORT INFORMATION
  Report Type: 
  Country: None (occurrence: None)
  Receive Date: 20081112
  Receipt Date: 20081103
  Transmission Date: 20090506
  Serious: Yes (Other)
  Sender: FDA-Public Use
  Company Number: IN-ROCHE-594994

PATIENT
  Sex: Male

DRUGS (1)
  1. GANCICLOVIR [Suspect]
     Indication: CONGENITAL CYTOMEGALOVIRUS INFECTION
     Route: 065

REACTIONS (2)
  - DEAFNESS NEUROSENSORY [None]
  - DEVELOPMENTAL DELAY [None]
